FAERS Safety Report 6071016-7 (Version None)
Quarter: 2009Q1

REPORT INFORMATION
  Report Type: 
  Country: None (occurrence: None)
  Receive Date: 20090209
  Receipt Date: 20090203
  Transmission Date: 20090719
  Serious: Yes (Life-Threatening)
  Sender: FDA-Public Use
  Company Number: B0556494A

PATIENT
  Age: 12 Year
  Sex: Male

DRUGS (4)
  1. RELENZA [Suspect]
     Indication: INFLUENZA
     Dosage: 10MG TWICE PER DAY
     Route: 055
     Dates: start: 20090126, end: 20090126
  2. HUSCODE [Concomitant]
     Route: 048
     Dates: start: 20090126
  3. DASEN [Concomitant]
     Dosage: 90MG PER DAY
     Route: 048
     Dates: start: 20090126
  4. CALONAL [Concomitant]
     Route: 065
     Dates: start: 20090126

REACTIONS (1)
  - ABNORMAL BEHAVIOUR [None]
